FAERS Safety Report 5408000-X (Version None)
Quarter: 2007Q3

REPORT INFORMATION
  Report Type: 
  Country: None (occurrence: None)
  Receive Date: 20070803
  Receipt Date: 20070723
  Transmission Date: 20080115
  Serious: Yes (Hospitalization, Other)
  Sender: FDA-Public Use
  Company Number: 230103K07GBR

PATIENT
  Sex: Female

DRUGS (1)
  1. REBIF [Suspect]
     Dosage: 22, 3 IN, SUBCUTANEOUS
     Route: 058
     Dates: start: 20030101

REACTIONS (3)
  - ABSCESS [None]
  - ANAEMIA [None]
  - INJURY [None]
